FAERS Safety Report 9585812 (Version 1)
Quarter: 2013Q4

REPORT INFORMATION
  Report Type: Spontaneous
  Country: GB (occurrence: None)
  Receive Date: 20131001
  Receipt Date: 20131001
  Transmission Date: 20140711
  Serious: Yes (Other)
  Sender: FDA-Public Use
  Company Number: AUR-APL-2013-07874

PATIENT
  Age: 53 Year
  Sex: Male

DRUGS (3)
  1. RIBAVIRIN (RIBAVIRIN) [Suspect]
     Indication: HEPATITIS C
     Route: 048
     Dates: start: 20130103
  2. PEGINTERFERON ALFA-2B (PEGINTERFERON ALFA-2B) [Suspect]
     Indication: HEPATITIS C
     Dates: start: 20130103
  3. TELAPREVIR (TELAPREVIR) [Suspect]
     Indication: HEPATITIS C
     Dosage: 2250 MG (750 MG 3 IN 1 D), ORAL
     Dates: start: 20130103

REACTIONS (6)
  - Palpitations [None]
  - Headache [None]
  - Chest pain [None]
  - Asthenia [None]
  - Vomiting [None]
  - Pain in extremity [None]
